FAERS Safety Report 9725472 (Version 1)
Quarter: 2013Q4

REPORT INFORMATION
  Report Type: Spontaneous
  Country: US (occurrence: None)
  Receive Date: 20131127
  Receipt Date: 20131127
  Transmission Date: 20140711
  Serious: Yes (Hospitalization)
  Sender: FDA-Public Use
  Company Number: 2013-1880

PATIENT
  Age: 86 Year
  Sex: Male

DRUGS (2)
  1. KYPROLIS [Suspect]
     Indication: PLASMA CELL MYELOMA
     Route: 042
     Dates: start: 201310, end: 20131030
  2. IRON (IRON) (IRON) [Concomitant]

REACTIONS (3)
  - Gastrointestinal haemorrhage [None]
  - Asthenia [None]
  - Abasia [None]
